FAERS Safety Report 9584633 (Version 1)
Quarter: 2013Q4

REPORT INFORMATION
  Report Type: Spontaneous
  Country: US (occurrence: US)
  Receive Date: 20131002
  Receipt Date: 20131002
  Transmission Date: 20140711
  Serious: No
  Sender: FDA-Public Use
  Company Number: US-AMGEN-USASP2013054977

PATIENT
  Age: 47 Year
  Sex: Female
  Weight: 58.96 kg

DRUGS (7)
  1. ENBREL [Suspect]
     Indication: PRODUCT USED FOR UNKNOWN INDICATION
     Dosage: 50 MG, QWK
     Route: 058
  2. ZOMIG [Concomitant]
     Dosage: 5 MG, UNK SPR
  3. PREMARIN [Concomitant]
     Dosage: 0.9 MG, UNK
  4. VENLAFAXINE [Concomitant]
     Dosage: 150 MG, UNK ER.
  5. IMIPRAMINE PAMOAT [Concomitant]
     Dosage: 125 MG, UNK
  6. MULTI [Concomitant]
     Dosage: UNK
  7. VITAMIN D3 [Concomitant]
     Dosage: 5000 UNIT, UNK

REACTIONS (2)
  - Injection site bruising [Unknown]
  - Psoriasis [Unknown]
